FAERS Safety Report 23467490 (Version 1)
Quarter: 2024Q1

REPORT INFORMATION
  Report Type: Spontaneous
  Country: US (occurrence: None)
  Receive Date: 20240201
  Receipt Date: 20240201
  Transmission Date: 20240410
  Serious: Yes (Death)
  Sender: FDA-Public Use
  Company Number: None

PATIENT
  Age: 19 Year
  Sex: Male
  Weight: 70 kg

DRUGS (2)
  1. HERBALS\HONEY [Suspect]
     Active Substance: HERBALS\HONEY
     Dates: start: 20240131, end: 20240201
  2. CANNABIS SATIVA SEED OIL\HERBALS [Suspect]
     Active Substance: CANNABIS SATIVA SEED OIL\HERBALS

REACTIONS (3)
  - Chest pain [None]
  - Cardiac arrest [None]
  - Loss of consciousness [None]

NARRATIVE: CASE EVENT DATE: 20240201
